FAERS Safety Report 9013552 (Version 1)
Quarter: 2013Q1

REPORT INFORMATION
  Report Type: Spontaneous
  Country: DE (occurrence: DE)
  Receive Date: 20130115
  Receipt Date: 20130115
  Transmission Date: 20140127
  Serious: Yes (Other)
  Sender: FDA-Public Use
  Company Number: PHHY2013DE003417

PATIENT
  Sex: Female

DRUGS (1)
  1. MYCOPHENOLIC ACID [Suspect]
     Indication: SYSTEMIC SCLEROSIS
     Dosage: 360 MG, UNK

REACTIONS (2)
  - Alveolitis [Unknown]
  - Systemic sclerosis [Unknown]
